FAERS Safety Report 20433225 (Version 8)
Quarter: 2022Q4

REPORT INFORMATION
  Report Type: Report from Study
  Country: US (occurrence: US)
  Receive Date: 20220205
  Receipt Date: 20221219
  Transmission Date: 20230113
  Serious: No
  Sender: FDA-Public Use
  Company Number: US-SANOFI-00802630

PATIENT
  Age: 61 Year
  Sex: Female

DRUGS (11)
  1. DUPILUMAB [Suspect]
     Active Substance: DUPILUMAB
     Indication: Dermatitis atopic
     Dosage: 300 MG, QOW
     Route: 058
     Dates: start: 202110
  2. DUPILUMAB [Suspect]
     Active Substance: DUPILUMAB
     Dosage: 300 MG, QOW
     Route: 058
     Dates: start: 202204
  3. MENTHOL [Concomitant]
     Active Substance: MENTHOL
  4. TACROLIMUS [Concomitant]
     Active Substance: TACROLIMUS
  5. BETAMETHASONE [Concomitant]
     Active Substance: BETAMETHASONE
  6. METRONIDAZOLE [Concomitant]
     Active Substance: METRONIDAZOLE
  7. VICKS NYQUIL [Concomitant]
     Active Substance: ACETAMINOPHEN\DEXTROMETHORPHAN HYDROBROMIDE\DOXYLAMINE SUCCINATE
  8. ZINC [Concomitant]
     Active Substance: ZINC
  9. AQUAPHOR [WHITE SOFT PARAFFIN] [Concomitant]
  10. VITAMIN C [Concomitant]
     Active Substance: ASCORBIC ACID
  11. VITAMIN D3 [Concomitant]
     Active Substance: CHOLECALCIFEROL

REACTIONS (9)
  - Swelling [Recovered/Resolved]
  - Injection site rash [Unknown]
  - Erythema [Unknown]
  - Nasopharyngitis [Unknown]
  - Injection site bruising [Not Recovered/Not Resolved]
  - Injection site erythema [Recovered/Resolved]
  - Injection site swelling [Unknown]
  - Rash [Recovered/Resolved]
  - Product dose omission issue [Unknown]

NARRATIVE: CASE EVENT DATE: 20220101
